FAERS Safety Report 5215204-8 (Version None)
Quarter: 2007Q1

REPORT INFORMATION
  Report Type: 
  Country: None (occurrence: None)
  Receive Date: 20070117
  Receipt Date: 20070108
  Transmission Date: 20070707
  Serious: Yes (Hospitalization)
  Sender: FDA-Public Use
  Company Number: FSC_0032_2007

PATIENT
  Age: 65 Year
  Sex: Female

DRUGS (5)
  1. VERAPAMIL [Suspect]
     Indication: SUPRAVENTRICULAR EXTRASYSTOLES
     Dosage: 40 MG TID PO
     Route: 048
  2. FLECAINIDE ACETATE [Suspect]
     Indication: SUPRAVENTRICULAR EXTRASYSTOLES
     Dosage: 100 MG QD PO
     Route: 048
  3. EZETIMIBE [Concomitant]
  4. DOXYLAMINE [Concomitant]
  5. OMEPRAZOLE [Concomitant]

REACTIONS (7)
  - ASTHENIA [None]
  - HYPERHIDROSIS [None]
  - HYPOGLYCAEMIA [None]
  - MALAISE [None]
  - PALLOR [None]
  - PARAESTHESIA [None]
  - THIRST [None]
